FAERS Safety Report 5465978-6 (Version None)
Quarter: 2007Q3

REPORT INFORMATION
  Report Type: 
  Country: None (occurrence: None)
  Receive Date: 20070924
  Receipt Date: 20070914
  Transmission Date: 20080115
  Serious: No
  Sender: FDA-Public Use
  Company Number: US-BOEHRINGER INGELHEIM PHARMACEUTICALS, INC.-2007-BP-20517BP

PATIENT
  Sex: Female

DRUGS (2)
  1. MIRAPEX [Suspect]
     Indication: RESTLESS LEGS SYNDROME
  2. REQUIP [Suspect]
     Indication: RESTLESS LEGS SYNDROME

REACTIONS (7)
  - ACTIVITIES OF DAILY LIVING IMPAIRED [None]
  - LIMB DISCOMFORT [None]
  - MOOD DISORDER DUE TO A GENERAL MEDICAL CONDITION [None]
  - MOVEMENT DISORDER [None]
  - RESTLESS LEGS SYNDROME [None]
  - SLEEP DISORDER [None]
  - SOMNOLENCE [None]
